FAERS Safety Report 4427310-6 (Version None)
Quarter: 2004Q3

REPORT INFORMATION
  Report Type: 
  Country: None (occurrence: None)
  Receive Date: 20040812
  Receipt Date: 20040805
  Transmission Date: 20050211
  Serious: Yes (Other)
  Sender: FDA-Public Use
  Company Number: 200410535BNE

PATIENT
  Age: 5 Year
  Sex: Male
  Weight: 14.4 kg

DRUGS (7)
  1. CIPROFLOXACIN [Suspect]
     Indication: INFECTION PROPHYLAXIS
     Dosage: 50 MG, TOTAL DAILY, ORAL
     Route: 048
     Dates: start: 20040314, end: 20040706
  2. CIPROFLOXACIN [Suspect]
     Indication: PROPHYLAXIS
     Dosage: 50 MG, TOTAL DAILY, ORAL
     Route: 048
     Dates: start: 20040314, end: 20040706
  3. CIPROFLOXACIN [Suspect]
     Indication: URINARY TRACT INFECTION
     Dosage: 50 MG, TOTAL DAILY, ORAL
     Route: 048
     Dates: start: 20040314, end: 20040706
  4. SYTRON [Concomitant]
  5. ALFACALCIDOL [Concomitant]
  6. TRIMETHOPRIM [Concomitant]
  7. AMOXICILLIN AND CLAVULANATE POTASSIUM [Concomitant]

REACTIONS (3)
  - CONTUSION [None]
  - HAEMATURIA [None]
  - THROMBOCYTOPENIA [None]
